FAERS Safety Report 7493781-4 (Version None)
Quarter: 2011Q2

REPORT INFORMATION
  Report Type: 
  Country: None (occurrence: None)
  Receive Date: 20110520
  Receipt Date: 20110302
  Transmission Date: 20111010
  Serious: No
  Sender: FDA-Public Use
  Company Number: US-ASTRAZENECA-2011SE11652

PATIENT
  Age: 88 Year
  Sex: Male

DRUGS (1)
  1. VIMOVO [Suspect]
     Indication: ARTHRITIS
     Dosage: 375-20 MILLIGRAMS TWO TIMES DAILY
     Route: 048
     Dates: start: 20110224

REACTIONS (2)
  - DRUG INEFFECTIVE [None]
  - ARTHRITIS [None]
